FAERS Safety Report 19129483 (Version 7)
Quarter: 2024Q1

REPORT INFORMATION
  Report Type: Spontaneous
  Country: US (occurrence: US)
  Receive Date: 20210413
  Receipt Date: 20240221
  Transmission Date: 20240410
  Serious: Yes (Other)
  Sender: FDA-Public Use
  Company Number: US-PFIZER INC-2021337031

PATIENT
  Age: 81 Year
  Sex: Female

DRUGS (2)
  1. XELJANZ XR [Suspect]
     Active Substance: TOFACITINIB CITRATE
     Dosage: 11 MG, 1X/DAY
  2. IRON [Concomitant]
     Active Substance: IRON
     Dosage: UNK

REACTIONS (5)
  - Fall [Unknown]
  - Spinal fracture [Unknown]
  - Hypoacusis [Unknown]
  - Bradykinesia [Unknown]
  - Oropharyngeal pain [Unknown]
